FAERS Safety Report 10349083 (Version 1)
Quarter: 2014Q3

REPORT INFORMATION
  Report Type: Spontaneous
  Country: US (occurrence: US)
  Receive Date: 20140729
  Receipt Date: 20140729
  Transmission Date: 20150326
  Serious: No
  Sender: FDA-Public Use
  Company Number: US-009507513-1407USA002713

PATIENT
  Age: 17 Year
  Sex: Female
  Weight: 99.77 kg

DRUGS (6)
  1. XANAX [Concomitant]
     Active Substance: ALPRAZOLAM
  2. LAMOTRIGINE. [Concomitant]
     Active Substance: LAMOTRIGINE
  3. NEXPLANON [Suspect]
     Active Substance: ETONOGESTREL
     Indication: MENSTRUAL CYCLE MANAGEMENT
     Dosage: UNK
     Route: 059
     Dates: start: 2010, end: 2013
  4. METOCLOPRAMIDE. [Concomitant]
     Active Substance: METOCLOPRAMIDE
  5. NEXPLANON [Suspect]
     Active Substance: ETONOGESTREL
     Indication: CONTRACEPTION
     Dosage: 1 IMPLANT/3 YEARS
     Route: 059
     Dates: start: 20130919
  6. ZOLPIDEM TARTRATE. [Concomitant]
     Active Substance: ZOLPIDEM TARTRATE
     Route: 048

REACTIONS (14)
  - Decreased appetite [Unknown]
  - Dysmenorrhoea [Unknown]
  - Pain [Unknown]
  - Abdominal pain [Unknown]
  - Amenorrhoea [Unknown]
  - Implant site pain [Unknown]
  - Gastric disorder [Unknown]
  - Weight decreased [Unknown]
  - Mood swings [Unknown]
  - Back pain [Unknown]
  - Major depression [Unknown]
  - Vomiting [Unknown]
  - Drug administration error [Unknown]
  - Vaginal discharge [Unknown]

NARRATIVE: CASE EVENT DATE: 20130919
